FAERS Safety Report 10660713 (Version 2)
Quarter: 2015Q1

REPORT INFORMATION
  Report Type: Spontaneous
  Country: JP (occurrence: JP)
  Receive Date: 20141217
  Receipt Date: 20150107
  Transmission Date: 20150720
  Serious: Yes (Other)
  Sender: FDA-Public Use
  Company Number: JP-MYLANLABS-2014M1014609

PATIENT

DRUGS (1)
  1. TACROLIMUS. [Suspect]
     Active Substance: TACROLIMUS
     Route: 042

REACTIONS (4)
  - Cerebral infarction [Not Recovered/Not Resolved]
  - Reversible cerebral vasoconstriction syndrome [Recovered/Resolved]
  - Paralysis [Recovering/Resolving]
  - Posterior reversible encephalopathy syndrome [Recovered/Resolved]
